FAERS Safety Report 6946776-0 (Version None)
Quarter: 2010Q3

REPORT INFORMATION
  Report Type: 
  Country: None (occurrence: None)
  Receive Date: 20100825
  Receipt Date: 20100819
  Transmission Date: 20110219
  Serious: Yes (Disabling)
  Sender: FDA-Public Use
  Company Number: 2010BN000044

PATIENT
  Age: 64 Year
  Sex: Male

DRUGS (9)
  1. MELPHALAN HYDROCHLORIDE [Suspect]
     Indication: STEM CELL TRANSPLANT
     Dosage: 200 MG/M2
  2. VINCRISTINE [Concomitant]
  3. CYCLOPHOSPHAMIDE [Concomitant]
  4. DOXORUBICIN HCL [Concomitant]
  5. METHYLPREDNISOLONE [Concomitant]
  6. DOXORUBICIN HCL [Concomitant]
  7. CARMUSTINE [Concomitant]
  8. CYCLOPHOSPHAMIDE [Concomitant]
  9. MELPHALAN [Concomitant]

REACTIONS (7)
  - AREFLEXIA [None]
  - BRACHIAL PLEXOPATHY [None]
  - CACHEXIA [None]
  - DIAPHRAGMATIC PARALYSIS [None]
  - MUSCULAR WEAKNESS [None]
  - MUSCULOSKELETAL PAIN [None]
  - NO THERAPEUTIC RESPONSE [None]
